FAERS Safety Report 6613578-4 (Version None)
Quarter: 2010Q1

REPORT INFORMATION
  Report Type: 
  Country: None (occurrence: None)
  Receive Date: 20100225
  Receipt Date: 20100212
  Transmission Date: 20100710
  Serious: Yes (Other)
  Sender: FDA-Public Use
  Company Number: WAES 1002USA02637

PATIENT
  Age: 72 Year
  Sex: Male
  Weight: 95.709 kg

DRUGS (12)
  1. VYTORIN [Suspect]
     Indication: ACUTE CORONARY SYNDROME
     Dosage: 10-40 MG/DAILY/PO
     Route: 048
     Dates: start: 20060410
  2. PLACEBO (UNSPECIFIED) UNK [Suspect]
     Indication: ACUTE CORONARY SYNDROME
     Dosage: PO
     Route: 048
     Dates: start: 20060410
  3. ADVAIR DISKUS 100/50 [Concomitant]
  4. COMBIVENT [Concomitant]
  5. HUMALOG [Concomitant]
  6. LANTUS [Concomitant]
  7. VASOTEC [Concomitant]
  8. ZOLOFT [Concomitant]
  9. ALBUTEROL [Concomitant]
  10. ASPIRIN [Concomitant]
  11. MAGNESIUM [Concomitant]
  12. METOPROLOL TARTRATE [Concomitant]

REACTIONS (3)
  - CARDIAC FAILURE [None]
  - CONDITION AGGRAVATED [None]
  - PROSTATE CANCER [None]
